FAERS Safety Report 11294472 (Version 1)
Quarter: 2015Q3

REPORT INFORMATION
  Report Type: Spontaneous
  Country: US (occurrence: US)
  Receive Date: 20150722
  Receipt Date: 20150722
  Transmission Date: 20151125
  Serious: No
  Sender: FDA-Public Use
  Company Number: US-ELI_LILLY_AND_COMPANY-US200808002596

PATIENT
  Age: 62 Year
  Sex: Female

DRUGS (11)
  1. VITAMIN B12 [Concomitant]
     Active Substance: CYANOCOBALAMIN
  2. ARICEPT [Concomitant]
     Active Substance: DONEPEZIL HYDROCHLORIDE
  3. LOPID [Concomitant]
     Active Substance: GEMFIBROZIL
  4. TOPAMAX [Concomitant]
     Active Substance: TOPIRAMATE
  5. FOLIC ACID. [Concomitant]
     Active Substance: FOLIC ACID
  6. NAMENDA [Concomitant]
     Active Substance: MEMANTINE HYDROCHLORIDE
  7. PROZAC [Concomitant]
     Active Substance: FLUOXETINE HYDROCHLORIDE
  8. NEURONTIN [Concomitant]
     Active Substance: GABAPENTIN
  9. EVISTA [Suspect]
     Active Substance: RALOXIFENE HYDROCHLORIDE
     Indication: OSTEOPOROSIS PROPHYLAXIS
     Dosage: 60 MG, DAILY (1/D)
     Dates: start: 200608
  10. EVISTA [Suspect]
     Active Substance: RALOXIFENE HYDROCHLORIDE
     Dosage: 60 MG, DAILY (1/D)
  11. MIACALCIN [Concomitant]
     Active Substance: CALCITONIN SALMON

REACTIONS (5)
  - Hot flush [Recovered/Resolved]
  - Premenstrual syndrome [Recovered/Resolved]
  - Mood swings [Recovered/Resolved]
  - Adnexa uteri pain [Recovered/Resolved]
  - Crying [Recovered/Resolved]
